FAERS Safety Report 17115374 (Version 1)
Quarter: 2019Q4

REPORT INFORMATION
  Report Type: Spontaneous
  Country: US (occurrence: US)
  Receive Date: 20191205
  Receipt Date: 20191205
  Transmission Date: 20200122
  Serious: Yes (Hospitalization, Other)
  Sender: FDA-Public Use
  Company Number: US-MYLANLABS-2019M1119161

PATIENT
  Age: 17 Year
  Sex: Male

DRUGS (5)
  1. BENZATROPINE [Interacting]
     Active Substance: BENZTROPINE
     Indication: DYSTONIA
  2. LITHIUM. [Suspect]
     Active Substance: LITHIUM
     Indication: MENTAL STATUS CHANGES
     Route: 065
  3. HALOPERIDOL. [Interacting]
     Active Substance: HALOPERIDOL
     Indication: MENTAL STATUS CHANGES
     Route: 065
  4. BENZATROPINE [Interacting]
     Active Substance: BENZTROPINE
     Indication: TREMOR
  5. BENZATROPINE [Interacting]
     Active Substance: BENZTROPINE
     Indication: PROPHYLAXIS
     Route: 065

REACTIONS (11)
  - Hyponatraemia [Unknown]
  - Metabolic acidosis [Unknown]
  - Drug interaction [Recovered/Resolved]
  - Galactorrhoea [Unknown]
  - Urinary tract obstruction [Recovered/Resolved]
  - Acute kidney injury [Recovered/Resolved]
  - Urinary tract infection [Unknown]
  - Hydronephrosis [Unknown]
  - Toxicity to various agents [Unknown]
  - Hyperprolactinaemia [Recovered/Resolved]
  - Hypothyroidism [Unknown]
